FAERS Safety Report 16122059 (Version 1)
Quarter: 2019Q2

REPORT INFORMATION
  Report Type: Spontaneous
  Country: US (occurrence: US)
  Receive Date: 20190326
  Receipt Date: 20190326
  Transmission Date: 20190711
  Serious: Yes (Life-Threatening, Other)
  Sender: FDA-Public Use
  Company Number: None

PATIENT
  Age: 48 Year
  Sex: Female
  Weight: 88.6 kg

DRUGS (2)
  1. LIDOCAINE. [Suspect]
     Active Substance: LIDOCAINE
     Indication: VENTRICULAR FIBRILLATION
     Dosage: ?          OTHER FREQUENCY:2MG/MIN CONTINUOUS;?
     Route: 041
     Dates: start: 20190325, end: 20190326
  2. LIDOCAINE. [Suspect]
     Active Substance: LIDOCAINE
     Indication: VENTRICULAR TACHYCARDIA
     Dosage: ?          OTHER FREQUENCY:2MG/MIN CONTINUOUS;?
     Route: 041
     Dates: start: 20190325, end: 20190326

REACTIONS (2)
  - Cerebrovascular accident [None]
  - Pulseless electrical activity [None]

NARRATIVE: CASE EVENT DATE: 20190326
